FAERS Safety Report 20691417 (Version 2)
Quarter: 2022Q2

REPORT INFORMATION
  Report Type: Report from Study
  Country: US (occurrence: US)
  Receive Date: 20220408
  Receipt Date: 20220531
  Transmission Date: 20220721
  Serious: Yes (Other)
  Sender: FDA-Public Use
  Company Number: US-BAYER-2022A045424

PATIENT
  Age: 45 Year
  Sex: Female

DRUGS (2)
  1. COPANLISIB [Suspect]
     Active Substance: COPANLISIB
     Indication: Thyroid cancer
     Dosage: UNK
     Dates: start: 20220321, end: 20220321
  2. VEMURAFENIB [Suspect]
     Active Substance: VEMURAFENIB
     Indication: Thyroid cancer
     Dosage: UNK
     Dates: start: 20220314, end: 20220324

REACTIONS (4)
  - Blood creatinine increased [Not Recovered/Not Resolved]
  - Nausea [None]
  - Nausea [Not Recovered/Not Resolved]
  - Vomiting [None]

NARRATIVE: CASE EVENT DATE: 20220321
